FAERS Safety Report 4836497-2 (Version None)
Quarter: 2005Q4

REPORT INFORMATION
  Report Type: 
  Country: None (occurrence: None)
  Receive Date: 20051118
  Receipt Date: 20051109
  Transmission Date: 20060501
  Serious: Yes (Life-Threatening)
  Sender: FDA-Public Use
  Company Number: 2005153593

PATIENT
  Age: 74 Year
  Sex: Male

DRUGS (3)
  1. ATORVASTATIN CALCIUM [Suspect]
     Indication: HYPERCHOLESTEROLAEMIA
     Dosage: (20 MG,), ORAL
     Route: 048
  2. SIMVASTATIN [Suspect]
     Indication: HYPERCHOLESTEROLAEMIA
     Dosage: (10 MG,), ORAL
     Route: 048
  3. ASPIRIN [Concomitant]

REACTIONS (5)
  - ABDOMINAL HAEMATOMA [None]
  - ARTERIAL THROMBOSIS LIMB [None]
  - DISSEMINATED INTRAVASCULAR COAGULATION [None]
  - DRUG INTOLERANCE [None]
  - PERIPHERAL ARTERY ANEURYSM [None]
